FAERS Safety Report 12308491 (Version 1)
Quarter: 2016Q2

REPORT INFORMATION
  Report Type: Spontaneous
  Country: US (occurrence: US)
  Receive Date: 20160427
  Receipt Date: 20160427
  Transmission Date: 20160815
  Serious: Yes (Hospitalization, Other)
  Sender: FDA-Public Use
  Company Number: US-AMGEN-USASP2016050457

PATIENT
  Age: 28 Year
  Sex: Female

DRUGS (1)
  1. BLINCYTO [Suspect]
     Active Substance: BLINATUMOMAB
     Indication: B-CELL TYPE ACUTE LEUKAEMIA
     Dosage: UNK,
     Route: 065
     Dates: start: 20160329

REACTIONS (4)
  - Acute lymphocytic leukaemia recurrent [Unknown]
  - Bone pain [Not Recovered/Not Resolved]
  - Clostridium test positive [Unknown]
  - Diarrhoea [Unknown]
